FAERS Safety Report 10345658 (Version 2)
Quarter: 2014Q3

REPORT INFORMATION
  Report Type: Spontaneous
  Country: US (occurrence: US)
  Receive Date: 20140728
  Receipt Date: 20140728
  Transmission Date: 20150326
  Serious: Yes (Death, Hospitalization)
  Sender: FDA-Public Use
  Company Number: US-GLAXOSMITHKLINE-A0834439A

PATIENT
  Sex: Male

DRUGS (1)
  1. AVANDIA [Suspect]
     Active Substance: ROSIGLITAZONE MALEATE
     Indication: DIABETES MELLITUS
     Route: 048
     Dates: start: 20030630, end: 20040621

REACTIONS (5)
  - Arrhythmia [Fatal]
  - Coronary artery disease [Unknown]
  - Pulmonary oedema [Unknown]
  - Peripheral vascular disorder [Unknown]
  - Arteriosclerosis coronary artery [Fatal]
